FAERS Safety Report 13728184 (Version 1)
Quarter: 2017Q3

REPORT INFORMATION
  Report Type: Report from Study
  Country: NL (occurrence: NL)
  Receive Date: 20170707
  Receipt Date: 20170707
  Transmission Date: 20171127
  Serious: Yes (Hospitalization, Other)
  Sender: FDA-Public Use
  Company Number: NL-AMGEN-NLDSL2017101371

PATIENT
  Age: 70 Year
  Sex: Male

DRUGS (2)
  1. XGEVA [Suspect]
     Active Substance: DENOSUMAB
     Dosage: UNK
     Route: 058
  2. XGEVA [Suspect]
     Active Substance: DENOSUMAB
     Indication: PROPHYLAXIS
     Dosage: 1.7 ML, (120 MG), Q4WK
     Route: 058

REACTIONS (4)
  - Thrombosis [Unknown]
  - Infection [Unknown]
  - Pain [Unknown]
  - Pyrexia [Unknown]
